FAERS Safety Report 9928648 (Version 1)
Quarter: 2014Q1

REPORT INFORMATION
  Report Type: Spontaneous
  Country: EG (occurrence: EG)
  Receive Date: 20140227
  Receipt Date: 20140227
  Transmission Date: 20141002
  Serious: Yes (Life-Threatening, Other)
  Sender: FDA-Public Use
  Company Number: PHHY2014EG020284

PATIENT
  Age: 23 Year
  Sex: Female

DRUGS (5)
  1. NITROFURANTOIN [Suspect]
     Indication: URINARY TRACT INFECTION
     Dosage: 1 DF, BID
  2. ENOXAPARIN SODIUM [Suspect]
     Indication: PROPHYLAXIS
     Dosage: 40 MG, UNK
     Route: 058
  3. REMIFENTANIL [Suspect]
     Dosage: 0.1 UG/KG/MIN
  4. PROPOFOL [Suspect]
     Dosage: 50 MG/HOUR
     Route: 041
  5. METHYLPREDNISOLONE [Suspect]
     Dosage: 1 MG/KG/DAY
     Route: 041

REACTIONS (15)
  - Respiratory failure [Unknown]
  - Acute respiratory distress syndrome [Unknown]
  - Dyspnoea [Unknown]
  - Tachypnoea [Unknown]
  - Cough [Unknown]
  - End-tidal CO2 decreased [Unknown]
  - Oxygen saturation decreased [Unknown]
  - Breath sounds abnormal [Unknown]
  - Hypocapnia [Unknown]
  - Rales [Unknown]
  - Hypoxia [Unknown]
  - Sinus tachycardia [Unknown]
  - Eosinophilia [Unknown]
  - Leukocytosis [Unknown]
  - Maternal exposure during pregnancy [Unknown]
